FAERS Safety Report 24458412 (Version 1)
Quarter: 2024Q4

REPORT INFORMATION
  Report Type: Report from Study
  Country: US (occurrence: US)
  Receive Date: 20241018
  Receipt Date: 20241018
  Transmission Date: 20250115
  Serious: No
  Sender: ROCHE
  Company Number: US-ROCHE-3517300

PATIENT

DRUGS (13)
  1. RITUXIMAB [Suspect]
     Active Substance: RITUXIMAB
     Indication: Diffuse large B-cell lymphoma
     Route: 037
  2. HYDROCORTISONE [Concomitant]
     Active Substance: HYDROCORTISONE
  3. DIPHENHYDRAMINE [Concomitant]
     Active Substance: DIPHENHYDRAMINE
  4. ACETAMINOPHEN [Concomitant]
     Active Substance: ACETAMINOPHEN
  5. FAMOTIDINE [Concomitant]
     Active Substance: FAMOTIDINE
  6. ETOPOSIDE [Concomitant]
     Active Substance: ETOPOSIDE
  7. CYTARABINE [Concomitant]
     Active Substance: CYTARABINE
  8. IFOSFAMIDE [Concomitant]
     Active Substance: IFOSFAMIDE
  9. RITUXIMAB [Concomitant]
     Active Substance: RITUXIMAB
     Route: 065
  10. CYCLOPHOSPHAMIDE [Concomitant]
     Active Substance: CYCLOPHOSPHAMIDE
  11. VINCRISTINE [Concomitant]
     Active Substance: VINCRISTINE
  12. DOXORUBICIN [Concomitant]
     Active Substance: DOXORUBICIN
  13. METHOTREXATE [Concomitant]
     Active Substance: METHOTREXATE

REACTIONS (2)
  - Headache [Unknown]
  - Off label use [Unknown]
